FAERS Safety Report 10501974 (Version 2)
Quarter: 2014Q4

REPORT INFORMATION
  Report Type: Report from Study
  Country: IN (occurrence: IN)
  Receive Date: 20141007
  Receipt Date: 20141009
  Transmission Date: 20150528
  Serious: Yes (Hospitalization)
  Sender: FDA-Public Use
  Company Number: PHHO2014IN013311

PATIENT
  Age: 34 Year
  Sex: Female
  Weight: 53 kg

DRUGS (14)
  1. MABTHERA [Suspect]
     Active Substance: RITUXIMAB
     Indication: NON-HODGKIN^S LYMPHOMA
     Dosage: CODE NOT BROKEN
     Route: 042
     Dates: start: 20140924
  2. BLINDED NO TREATMENT RECEIVED [Suspect]
     Active Substance: UNSPECIFIED INGREDIENT
     Indication: NON-HODGKIN^S LYMPHOMA
     Dosage: CODE NOT BROKEN
     Route: 042
     Dates: start: 20140924
  3. CYCLOXAN [Suspect]
     Active Substance: CYCLOPHOSPHAMIDE
     Indication: NON-HODGKIN^S LYMPHOMA
     Dosage: 1132.5 MG, SINGLE DOSE
     Route: 042
     Dates: start: 20140924, end: 20140924
  4. ONDANSETRON [Concomitant]
     Active Substance: ONDANSETRON
     Indication: PROPHYLAXIS OF NAUSEA AND VOMITING
     Dosage: 8 MG, SINGLE DOSE (SOLUTION)
     Route: 042
     Dates: start: 20140924, end: 20140924
  5. ESOMEPRAZOLE [Concomitant]
     Active Substance: ESOMEPRAZOLE
     Dosage: 40 MG, OD
     Route: 048
     Dates: start: 20141001, end: 20141007
  6. OMNACORTIL [Suspect]
     Active Substance: PREDNISOLONE
     Dosage: 100 MG, OD (TABLET)
     Route: 048
     Dates: start: 20141001, end: 20141004
  7. ONDANSETRON [Concomitant]
     Active Substance: ONDANSETRON
     Dosage: 8 MG, BID (TABLET)
     Route: 048
     Dates: start: 20140926, end: 20140928
  8. RANITIDINE [Concomitant]
     Active Substance: RANITIDINE\RANITIDINE HYDROCHLORIDE
     Indication: GASTRITIS PROPHYLAXIS
     Dosage: 50 MG, SINGLE DOSE
     Route: 042
     Dates: start: 20140924, end: 20140924
  9. CYTOCRISTIN [Suspect]
     Active Substance: VINCRISTINE SULFATE
     Indication: NON-HODGKIN^S LYMPHOMA
     Dosage: 2 MG, SINGLE DOSE
     Route: 040
     Dates: start: 20140924, end: 20140924
  10. RITUXAN [Suspect]
     Active Substance: RITUXIMAB
     Indication: NON-HODGKIN^S LYMPHOMA
     Dosage: CODE NOT BROKEN
     Route: 042
     Dates: start: 20140924
  11. ONDANSETRON [Concomitant]
     Active Substance: ONDANSETRON
     Dosage: 8 MG, SINGLE DOSE (SOLUTION)
     Route: 042
     Dates: start: 20140929
  12. ONDANSETRON [Concomitant]
     Active Substance: ONDANSETRON
     Dosage: 8 MG, BID (TABLET)
     Route: 048
     Dates: start: 20141001, end: 20141003
  13. ESOMEPRAZOLE [Concomitant]
     Active Substance: ESOMEPRAZOLE
     Indication: GASTRITIS PROPHYLAXIS
     Dosage: 40 MG, OD
     Route: 048
     Dates: start: 20140925, end: 20140929
  14. OMNACORTIL [Suspect]
     Active Substance: PREDNISOLONE
     Indication: NON-HODGKIN^S LYMPHOMA
     Dosage: 100 MG, OD (TABLET)
     Route: 048
     Dates: start: 20140924, end: 20140928

REACTIONS (1)
  - Ileus paralytic [Recovered/Resolved]

NARRATIVE: CASE EVENT DATE: 20140927
